FAERS Safety Report 5635634-X (Version None)
Quarter: 2008Q1

REPORT INFORMATION
  Report Type: 
  Country: None (occurrence: None)
  Receive Date: 20080220
  Receipt Date: 20080208
  Transmission Date: 20080703
  Serious: Yes (Hospitalization)
  Sender: FDA-Public Use
  Company Number: GXKR2008KR01509

PATIENT
  Age: 39 Year
  Sex: Male

DRUGS (1)
  1. ACETYLSALICYLIC ACID (NGX)(ACETYLSLICYLIC ACID) UNKNOWN [Suspect]
     Indication: ISCHAEMIC STROKE
     Dosage: 300 MG/DAY

REACTIONS (1)
  - CEREBRAL HAEMORRHAGE [None]
